FAERS Safety Report 12225452 (Version 2)
Quarter: 2016Q2

REPORT INFORMATION
  Report Type: Spontaneous
  Country: US (occurrence: US)
  Receive Date: 20160331
  Receipt Date: 20160505
  Transmission Date: 20160815
  Serious: Yes (Hospitalization)
  Sender: FDA-Public Use
  Company Number: US-BAYER-2016-061221

PATIENT
  Age: 16 Year
  Sex: Female

DRUGS (4)
  1. GADAVIST [Suspect]
     Active Substance: GADOBUTROL
     Indication: NUCLEAR MAGNETIC RESONANCE IMAGING
     Dosage: 0.1 ML/KG, ONCE
     Route: 042
     Dates: start: 20160329, end: 20160329
  2. GADAVIST [Suspect]
     Active Substance: GADOBUTROL
     Indication: NUCLEAR MAGNETIC RESONANCE IMAGING
     Dosage: 0.1 MG/KG, ONCE
     Dates: start: 20151231, end: 20151231
  3. PREDNISONE. [Concomitant]
     Active Substance: PREDNISONE
     Indication: PREMEDICATION
     Dosage: UNK
     Dates: start: 20160328, end: 20160329
  4. DIPHENHYDRAMINE HYDROCHLORIDE. [Concomitant]
     Active Substance: DIPHENHYDRAMINE HYDROCHLORIDE
     Indication: PREMEDICATION
     Dosage: UNK
     Dates: start: 20160328, end: 20160329

REACTIONS (5)
  - Dyspnoea [None]
  - Urticaria [Recovered/Resolved]
  - Urticaria [None]
  - Nausea [None]
  - Pruritus [Recovered/Resolved]

NARRATIVE: CASE EVENT DATE: 20151231
